FAERS Safety Report 8335919-2 (Version None)
Quarter: 2012Q2

REPORT INFORMATION
  Report Type: 
  Country: None (occurrence: None)
  Receive Date: 20120504
  Receipt Date: 20120430
  Transmission Date: 20120825
  Serious: No
  Sender: FDA-Public Use
  Company Number: US-PFIZER INC-2012053874

PATIENT
  Sex: Male

DRUGS (1)
  1. CELEBREX [Suspect]
     Dosage: UNK
     Dates: end: 20070101

REACTIONS (3)
  - ARTHRITIS [None]
  - PAIN IN EXTREMITY [None]
  - ARTHRALGIA [None]
